FAERS Safety Report 19592031 (Version 1)
Quarter: 2021Q3

REPORT INFORMATION
  Report Type: Spontaneous
  Country: US (occurrence: US)
  Receive Date: 20210722
  Receipt Date: 20210722
  Transmission Date: 20211014
  Serious: No
  Sender: FDA-Public Use
  Company Number: US-TEVA-2021-US-1933859

PATIENT
  Sex: Female

DRUGS (21)
  1. FOSAMAX 70 MG TABLET [Concomitant]
     Route: 065
  2. HYDROXYZINE PAMOATE. [Concomitant]
     Active Substance: HYDROXYZINE PAMOATE
     Route: 065
  3. PALIPERIDONE ER 3 MG TAB ER 24 [Concomitant]
     Route: 065
  4. VITAMIN C 1000 MG TABLET [Concomitant]
     Route: 065
  5. GABAPENTIN 100 MG CAPSULE [Concomitant]
     Active Substance: GABAPENTIN
     Route: 065
  6. ERYTHROMYCIN 250 MG TABLET [Concomitant]
     Route: 065
  7. MULTIVITAMIN CAPSULE [Concomitant]
     Active Substance: VITAMINS
     Route: 065
  8. FLUTICASONE?SALMETEROL [Concomitant]
     Route: 065
  9. PANTOPRAZOLE SODIUM 20 MG TABLET DR [Concomitant]
     Route: 065
  10. PFIZER?BIONTECH COVID?19 VACCINE [Concomitant]
     Active Substance: TOZINAMERAN
     Route: 065
  11. ALBUTEROL SULFATE. [Concomitant]
     Active Substance: ALBUTEROL SULFATE
     Route: 065
  12. TRAZODONE HCL 100 MG TABLET [Concomitant]
     Route: 065
  13. VITAMIN D3 10 MCG CAPSULE [Concomitant]
     Route: 065
  14. ATORVASTATIN CALCIUM 10 MG TABLET [Concomitant]
     Route: 065
  15. SPIRIVA RESPIMAT [Concomitant]
     Active Substance: TIOTROPIUM BROMIDE
     Route: 065
  16. AUSTEDO [Suspect]
     Active Substance: DEUTETRABENAZINE
     Indication: TARDIVE DYSKINESIA
     Route: 048
  17. TOVIAZ 4 MG TAB ER 24H [Concomitant]
     Route: 065
  18. DULOXETINE HCL 20 MG CAPSULE DR [Concomitant]
     Route: 065
  19. VITAMIN B?100 COMPLEX 0.4 MG TABLET [Concomitant]
     Route: 065
  20. TYLENOL 325 MG TABLET [Concomitant]
     Route: 065
  21. ASPIRIN 100 % POWDER [Concomitant]
     Route: 065

REACTIONS (1)
  - Fall [Unknown]
